FAERS Safety Report 6420523-3 (Version None)
Quarter: 2009Q4

REPORT INFORMATION
  Report Type: 
  Country: None (occurrence: None)
  Receive Date: 20091027
  Receipt Date: 20091015
  Transmission Date: 20100525
  Serious: Yes (Other)
  Sender: FDA-Public Use
  Company Number: 2009AL006738

PATIENT
  Age: 31 Year
  Sex: Female

DRUGS (3)
  1. DIAZEPAM TAB [Suspect]
     Indication: MIGRAINE
     Dates: start: 20090327
  2. TRAMADOL HYDROCHLORIDE [Suspect]
     Indication: MIGRAINE
     Dates: start: 20090327
  3. DRAMIN [Concomitant]

REACTIONS (5)
  - FEELING ABNORMAL [None]
  - HYPERHIDROSIS [None]
  - PHOTOPSIA [None]
  - TREMOR [None]
  - VOMITING [None]
